FAERS Safety Report 15509003 (Version 2)
Quarter: 2018Q4

REPORT INFORMATION
  Report Type: Spontaneous
  Country: US (occurrence: US)
  Receive Date: 20181016
  Receipt Date: 20181219
  Transmission Date: 20190205
  Serious: Yes (Other)
  Sender: FDA-Public Use
  Company Number: US-GLAXOSMITHKLINE-US2018184561

PATIENT
  Sex: Male
  Weight: 93.42 kg

DRUGS (1)
  1. ADVAIR DISKUS [Suspect]
     Active Substance: FLUTICASONE PROPIONATE\SALMETEROL XINAFOATE
     Indication: ASTHMA
     Dosage: 1 PUFF(S), BID
     Route: 055
     Dates: start: 2008, end: 20181128

REACTIONS (12)
  - Lower respiratory tract infection [Unknown]
  - Intentional dose omission [Unknown]
  - Nasopharyngitis [Unknown]
  - Dyspnoea [Unknown]
  - Chest discomfort [Unknown]
  - Intentional product misuse [Unknown]
  - Bronchitis [Unknown]
  - Lower respiratory tract congestion [Unknown]
  - Expired product administered [Unknown]
  - Off label use [Unknown]
  - Underdose [Unknown]
  - Product use in unapproved indication [Unknown]
